FAERS Safety Report 5484275-6 (Version None)
Quarter: 2007Q4

REPORT INFORMATION
  Report Type: 
  Country: None (occurrence: None)
  Receive Date: 20071010
  Receipt Date: 20070925
  Transmission Date: 20080405
  Serious: Yes (Hospitalization)
  Sender: FDA-Public Use
  Company Number: 2007S1009370

PATIENT
  Age: 13 Year
  Sex: Female

DRUGS (1)
  1. VERAPAMIL HCL [Suspect]
     Dosage: X1

REACTIONS (7)
  - AV DISSOCIATION [None]
  - BRADYCARDIA [None]
  - DRUG TOXICITY [None]
  - HYPOTENSION [None]
  - INTENTIONAL OVERDOSE [None]
  - SOMNOLENCE [None]
  - SUICIDE ATTEMPT [None]
